FAERS Safety Report 25895812 (Version 1)
Quarter: 2025Q4

REPORT INFORMATION
  Report Type: Spontaneous
  Country: US (occurrence: US)
  Receive Date: 20251008
  Receipt Date: 20251008
  Transmission Date: 20260117
  Serious: No
  Sender: ROCHE
  Company Number: US-ROCHE-10000403589

PATIENT
  Age: 63 Year
  Sex: Female

DRUGS (10)
  1. TRASTUZUMAB [Suspect]
     Active Substance: TRASTUZUMAB
     Indication: Breast cancer metastatic
     Route: 065
  2. ALPELISIB [Suspect]
     Active Substance: ALPELISIB
     Indication: Breast cancer metastatic
     Route: 065
  3. ADO-TRASTUZUMAB EMTANSINE [Concomitant]
     Active Substance: ADO-TRASTUZUMAB EMTANSINE
  4. CAPECITABINE [Concomitant]
     Active Substance: CAPECITABINE
     Route: 048
  5. LAPATINIB [Concomitant]
     Active Substance: LAPATINIB
  6. PACLITAXEL [Concomitant]
     Active Substance: PACLITAXEL
  7. VINORELBINE [Concomitant]
     Active Substance: VINORELBINE TARTRATE
  8. TRASTUZUMAB DERUXTECAN [Concomitant]
     Active Substance: TRASTUZUMAB DERUXTECAN
  9. MARGETUXIMAB CMKB [Concomitant]
  10. ERIBULIN [Concomitant]
     Active Substance: ERIBULIN

REACTIONS (2)
  - Mucosal inflammation [Unknown]
  - Off label use [Unknown]
